FAERS Safety Report 7636839-9 (Version None)
Quarter: 2011Q3

REPORT INFORMATION
  Report Type: 
  Country: None (occurrence: None)
  Receive Date: 20110726
  Receipt Date: 20110723
  Transmission Date: 20111222
  Serious: Yes (Hospitalization)
  Sender: FDA-Public Use
  Company Number: IT-AMGEN-ITACT2011036517

PATIENT
  Age: 73 Year
  Sex: Male
  Weight: 70 kg

DRUGS (9)
  1. IRINOTECAN HCL [Concomitant]
     Dosage: 216 MG, UNK
     Dates: start: 20110127, end: 20110520
  2. OXALIPLATIN [Concomitant]
     Dosage: 153 MG, UNK
     Dates: start: 20110127, end: 20110520
  3. CIPROFLOXACIN [Concomitant]
     Dosage: UNK
     Dates: start: 20110427, end: 20110501
  4. CLAVULANATE POTASSIUM [Concomitant]
     Dosage: UNK
     Dates: start: 20110427, end: 20110501
  5. LEUCOVORIN CALCIUM [Concomitant]
     Dosage: 360 MG, UNK
     Dates: start: 20110127, end: 20110520
  6. AMOXICILLIN [Concomitant]
     Dosage: UNK
     Dates: start: 20110427, end: 20110501
  7. PANITUMUMAB [Suspect]
     Indication: COLORECTAL CANCER METASTATIC
     Dosage: 390 MG, UNK
     Dates: start: 20110127
  8. FLUOROURACIL [Concomitant]
     Dosage: 4320 MG, UNK
     Dates: start: 20110127, end: 20110520
  9. LANSOPRAZOLE [Concomitant]
     Dosage: 30 MG, UNK
     Dates: start: 20110124

REACTIONS (5)
  - NEUTROPENIA [None]
  - ASTHENIA [None]
  - THROMBOCYTOPENIA [None]
  - DIARRHOEA [None]
  - STOMATITIS [None]
